FAERS Safety Report 8119055-6 (Version None)
Quarter: 2012Q1

REPORT INFORMATION
  Report Type: 
  Country: None (occurrence: None)
  Receive Date: 20120207
  Receipt Date: 20120131
  Transmission Date: 20120608
  Serious: Yes (Death)
  Sender: FDA-Public Use
  Company Number: US-ROCHE-1034557

PATIENT
  Sex: Female

DRUGS (13)
  1. AVASTIN [Suspect]
     Route: 065
     Dates: end: 20080304
  2. CELEBREX [Concomitant]
     Route: 048
  3. DICYCLOMINE [Concomitant]
  4. WELLBUTRIN [Concomitant]
     Route: 048
  5. BMX MOUTHWASH (BENADRYL, MAALOX, XYLOCAINE) [Concomitant]
     Indication: STOMATITIS
     Dosage: EVERY 3 TO 4 HOURS
  6. OXALIPLATIN [Concomitant]
  7. XELODA [Suspect]
     Indication: PRODUCT USED FOR UNKNOWN INDICATION
     Route: 065
  8. FLUOROURACIL [Concomitant]
  9. NEXIUM [Concomitant]
     Route: 048
  10. LEUCOVORIN CALCIUM [Concomitant]
  11. IRINOTECAN HCL [Concomitant]
     Dates: start: 20070901
  12. CETUXIMAB [Concomitant]
  13. AVASTIN [Suspect]
     Indication: PRODUCT USED FOR UNKNOWN INDICATION
     Route: 065
     Dates: end: 20070901

REACTIONS (1)
  - DISEASE PROGRESSION [None]
